FAERS Safety Report 6755653-X (Version None)
Quarter: 2010Q2

REPORT INFORMATION
  Report Type: 
  Country: None (occurrence: None)
  Receive Date: 20100604
  Receipt Date: 20100525
  Transmission Date: 20101027
  Serious: Yes (Hospitalization, Other)
  Sender: FDA-Public Use
  Company Number: US-BAYER-200941415NA

PATIENT
  Age: 17 Year
  Sex: Female
  Weight: 57 kg

DRUGS (4)
  1. YAZ [Suspect]
     Indication: DRUG USE FOR UNKNOWN INDICATION
     Dosage: STOP DATE: JUL/AUG-2008
     Dates: start: 20070901, end: 20080101
  2. TYLENOL [Concomitant]
     Dosage: USE: OFTEN NOS
     Route: 065
  3. NAPROXEN [Concomitant]
     Route: 065
  4. UNKNOWN DRUG [Concomitant]
     Indication: MIGRAINE
     Route: 065

REACTIONS (4)
  - ABDOMINAL PAIN [None]
  - CHOLELITHIASIS [None]
  - LIVER FUNCTION TEST ABNORMAL [None]
  - PAIN [None]
